FAERS Safety Report 13184112 (Version 1)
Quarter: 2017Q1

REPORT INFORMATION
  Report Type: Spontaneous
  Country: US (occurrence: US)
  Receive Date: 20170203
  Receipt Date: 20170203
  Transmission Date: 20170428
  Serious: No
  Sender: FDA-Public Use
  Company Number: US-009507513-1701USA011086

PATIENT
  Age: 50 Year
  Sex: Male
  Weight: 79.37 kg

DRUGS (1)
  1. BELSOMRA [Suspect]
     Active Substance: SUVOREXANT
     Indication: INSOMNIA
     Dosage: 1 PILL EVERY NIGHT
     Route: 048

REACTIONS (4)
  - Insomnia [Unknown]
  - Sleep disorder [Unknown]
  - Poor quality sleep [Unknown]
  - Dreamy state [Unknown]

NARRATIVE: CASE EVENT DATE: 201701
